FAERS Safety Report 9191341 (Version 1)
Quarter: 2013Q1

REPORT INFORMATION
  Report Type: Spontaneous
  Country: ES (occurrence: ES)
  Receive Date: 20130326
  Receipt Date: 20130326
  Transmission Date: 20140127
  Serious: Yes (Hospitalization)
  Sender: FDA-Public Use
  Company Number: ES-JNJFOC-20130315035

PATIENT
  Age: 59 Year
  Sex: Male

DRUGS (4)
  1. CETIRIZINE HYDROCHLORIDE \ PSEUDOEPHEDRINE HYDROCHLORIDE [Suspect]
     Route: 048
  2. CETIRIZINE HYDROCHLORIDE \ PSEUDOEPHEDRINE HYDROCHLORIDE [Suspect]
     Indication: BRONCHITIS
     Dosage: 1 WEEK 2 DAYS
     Route: 048
     Dates: start: 20120206, end: 20120214
  3. METFORMIN [Suspect]
     Indication: DIABETES MELLITUS
     Dosage: 8 WEEKS 2 DAYS
     Route: 048
     Dates: start: 20111227, end: 20120222
  4. AUGMENTIN [Suspect]
     Indication: BRONCHITIS
     Dosage: 875/125MG. DURATION 2 WEEKS
     Route: 048
     Dates: start: 20120206, end: 20120214

REACTIONS (2)
  - Drug reaction with eosinophilia and systemic symptoms [Recovered/Resolved]
  - Off label use [Unknown]
